FAERS Safety Report 8909378 (Version 1)
Quarter: 2012Q4

REPORT INFORMATION
  Report Type: Spontaneous
  Country: GB (occurrence: None)
  Receive Date: 20121109
  Receipt Date: 20121109
  Transmission Date: 20130627
  Serious: Yes (Life-Threatening)
  Sender: FDA-Public Use
  Company Number: GB-DEXPHARM-20121482

PATIENT
  Age: 0 Day
  Sex: Male

DRUGS (5)
  1. OMEPRAZOLE [Suspect]
     Dosage: 20 mg milligram(s) Oral
     Route: 048
  2. CINNARIZINE [Concomitant]
  3. FORCEVAL [Concomitant]
  4. MIRTAZAPINE [Concomitant]
  5. PARACETAMOL [Concomitant]

REACTIONS (3)
  - Cardiac arrest [None]
  - Hypokalaemia [None]
  - Hypomagnesaemia [None]
